FAERS Safety Report 16851861 (Version 2)
Quarter: 2019Q4

REPORT INFORMATION
  Report Type: Spontaneous
  Country: US (occurrence: US)
  Receive Date: 20190925
  Receipt Date: 20191001
  Transmission Date: 20200122
  Serious: No
  Sender: FDA-Public Use
  Company Number: US-TEVA-2019-US-1112449

PATIENT
  Sex: Female

DRUGS (2)
  1. ESOMEPRAZOLE MAGNESIUM DELAYED RELEASE [Suspect]
     Active Substance: ESOMEPRAZOLE MAGNESIUM
     Route: 065
  2. ESOMEPRAZOLE MAGNESIUM DELAYED RELEASE [Suspect]
     Active Substance: ESOMEPRAZOLE MAGNESIUM
     Route: 065

REACTIONS (4)
  - Therapy change [Unknown]
  - Throat irritation [Unknown]
  - Reaction to excipient [Unknown]
  - Product quality issue [Unknown]

NARRATIVE: CASE EVENT DATE: 20190923
